FAERS Safety Report 19092757 (Version 2)
Quarter: 2021Q2

REPORT INFORMATION
  Report Type: Report from Study
  Country: DE (occurrence: DE)
  Receive Date: 20210405
  Receipt Date: 20210513
  Transmission Date: 20210717
  Serious: Yes (Hospitalization)
  Sender: FDA-Public Use
  Company Number: DE-JNJFOC-20210349952

PATIENT
  Age: 69 Year
  Sex: Male
  Weight: 93 kg

DRUGS (17)
  1. BUPROPIONE [Concomitant]
     Active Substance: BUPROPION HYDROCHLORIDE
  2. HYPNOREX [Concomitant]
     Active Substance: LITHIUM CARBONATE
     Dosage: HYPNOREX RETARD DOSE
  3. MIRTAZAPIN [Concomitant]
     Active Substance: MIRTAZAPINE
  4. VALSAMTRIO [Concomitant]
     Indication: HYPERTENSION
  5. ATORVASTATIN [Concomitant]
     Active Substance: ATORVASTATIN
     Indication: HYPERCHOLESTEROLAEMIA
  6. LORAZEPAM. [Concomitant]
     Active Substance: LORAZEPAM
     Indication: RESTLESSNESS
  7. HYPNOREX [Concomitant]
     Active Substance: LITHIUM CARBONATE
     Indication: DEPRESSION
  8. ASS PROTECT [Concomitant]
     Indication: CARDIOVASCULAR EVENT PROPHYLAXIS
  9. SPIROBETA [Concomitant]
     Active Substance: SPIRONOLACTONE
     Indication: OEDEMA PERIPHERAL
  10. SPRAVATO [Suspect]
     Active Substance: ESKETAMINE
     Indication: DEPRESSION
     Dates: start: 20201005, end: 20201207
  11. MILNACIPRAN [Suspect]
     Active Substance: MILNACIPRAN
     Indication: DEPRESSION
     Route: 048
     Dates: start: 20200709, end: 20201214
  12. LEVOTHYROXINE SODIUM. [Concomitant]
     Active Substance: LEVOTHYROXINE SODIUM
     Indication: HYPOTHYROIDISM
  13. MIRTAZAPIN [Concomitant]
     Active Substance: MIRTAZAPINE
     Indication: DEPRESSION
  14. AMLO VALSACOR [Concomitant]
     Active Substance: AMLODIPINE BESYLATE\VALSARTAN
     Indication: HYPERTENSION
  15. MIRTAZAPIN [Concomitant]
     Active Substance: MIRTAZAPINE
  16. BUPROPIONE [Concomitant]
     Active Substance: BUPROPION HYDROCHLORIDE
     Indication: DEPRESSION
  17. QUETIAPINE. [Concomitant]
     Active Substance: QUETIAPINE
     Indication: DEPRESSION

REACTIONS (1)
  - Suicidal ideation [Recovered/Resolved]

NARRATIVE: CASE EVENT DATE: 20210318
